FAERS Safety Report 7515450-4 (Version None)
Quarter: 2011Q2

REPORT INFORMATION
  Report Type: 
  Country: None (occurrence: None)
  Receive Date: 20110526
  Receipt Date: 20110526
  Transmission Date: 20111010
  Serious: Yes (Hospitalization)
  Sender: FDA-Public Use
  Company Number: None

PATIENT
  Age: 87 Year
  Sex: Male
  Weight: 67.5 kg

DRUGS (1)
  1. MESALAMINE [Suspect]
     Indication: COLITIS ULCERATIVE
     Dosage: 1500 MG EVERY DAY PO
     Route: 048
     Dates: start: 20101202

REACTIONS (5)
  - HYPOPHAGIA [None]
  - FAECAL INCONTINENCE [None]
  - DECREASED APPETITE [None]
  - BILE DUCT STONE [None]
  - CHOLANGITIS [None]
